FAERS Safety Report 15534208 (Version 1)
Quarter: 2018Q4

REPORT INFORMATION
  Report Type: Spontaneous
  Country: US (occurrence: US)
  Receive Date: 20181019
  Receipt Date: 20181019
  Transmission Date: 20190205
  Serious: Yes (Disabling)
  Sender: FDA-Public Use
  Company Number: None

PATIENT
  Age: 59 Year
  Sex: Female
  Weight: 42.3 kg

DRUGS (1)
  1. OCEAN SALINE NASAL SPRAY [Suspect]
     Active Substance: SODIUM CHLORIDE
     Indication: HYPERSENSITIVITY
     Dosage: ?          OTHER STRENGTH:0.65%;QUANTITY:1 DROP(S);?
     Route: 055
     Dates: start: 20180205, end: 20180418

REACTIONS (5)
  - Chronic sinusitis [None]
  - Sinusitis bacterial [None]
  - Recalled product administered [None]
  - Product contamination microbial [None]
  - Pseudomonas infection [None]

NARRATIVE: CASE EVENT DATE: 20180418
